FAERS Safety Report 25947364 (Version 2)
Quarter: 2025Q4

REPORT INFORMATION
  Report Type: Report from Study
  Country: US (occurrence: US)
  Receive Date: 20251022
  Receipt Date: 20251028
  Transmission Date: 20260117
  Serious: Yes (Other)
  Sender: ACADIA PHARMACEUTICALS
  Company Number: US-ACADIA PHARMACEUTICALS INC.-ACA-2025-PIM-011321

PATIENT
  Sex: Male

DRUGS (1)
  1. NUPLAZID [Suspect]
     Active Substance: PIMAVANSERIN TARTRATE
     Indication: Parkinson^s disease psychosis
     Dosage: 34 MILLIGRAM, QD
     Route: 048
     Dates: start: 20251009, end: 20251011

REACTIONS (5)
  - Dementia [Unknown]
  - Cerebrovascular accident [Unknown]
  - Seizure [Unknown]
  - Affect lability [Not Recovered/Not Resolved]
  - Product prescribing error [Not Recovered/Not Resolved]
